FAERS Safety Report 7206242-4 (Version None)
Quarter: 2010Q4

REPORT INFORMATION
  Report Type: 
  Country: None (occurrence: None)
  Receive Date: 20101221
  Receipt Date: 20101210
  Transmission Date: 20110411
  Serious: Yes (Hospitalization, Other)
  Sender: FDA-Public Use
  Company Number: 2010AP002500

PATIENT
  Age: 79 Year
  Sex: Female

DRUGS (11)
  1. SOTALOL HCL [Suspect]
     Indication: INFLUENZA
     Dosage: 40 MG;BID
  2. OSELTAMIVIR [Suspect]
     Dosage: 75 MG;BID
  3. ASPIRIN [Concomitant]
  4. WARFARIN [Concomitant]
  5. LISINOPRIL [Concomitant]
  6. FUROSEMIDE [Concomitant]
  7. POTASSIUM CHLORIDE [Concomitant]
  8. CALCIUM [Concomitant]
  9. LECITHIN [Concomitant]
  10. GLUCOSAMINE [Concomitant]
  11. MULTI-VITAMINS [Concomitant]

REACTIONS (6)
  - ABDOMINAL DISCOMFORT [None]
  - BLOOD POTASSIUM DECREASED [None]
  - COLITIS ISCHAEMIC [None]
  - DRUG INTERACTION [None]
  - SINUS BRADYCARDIA [None]
  - TORSADE DE POINTES [None]
